FAERS Safety Report 4664646-8 (Version None)
Quarter: 2005Q2

REPORT INFORMATION
  Report Type: 
  Country: None (occurrence: None)
  Receive Date: 20050518
  Receipt Date: 20050506
  Transmission Date: 20051028
  Serious: Yes (Hospitalization, Other)
  Sender: FDA-Public Use
  Company Number: PHEH2005US05253

PATIENT
  Age: 44 Year
  Sex: Female

DRUGS (2)
  1. TEGRETOL-XR [Suspect]
     Indication: COMPLEX PARTIAL SEIZURES
     Dosage: 1000 MG, QD
     Route: 048
     Dates: start: 20010101, end: 20050428
  2. TEGRETOL [Suspect]
     Indication: COMPLEX PARTIAL SEIZURES
     Dosage: 1200 MG, QD
     Route: 048
     Dates: start: 19990101, end: 20010101

REACTIONS (24)
  - ALOPECIA [None]
  - AMNESIA [None]
  - ANTICONVULSANT DRUG LEVEL INCREASED [None]
  - ANXIETY [None]
  - ARTHRALGIA [None]
  - ASPARTATE AMINOTRANSFERASE INCREASED [None]
  - BACK PAIN [None]
  - BLOOD CHOLESTEROL INCREASED [None]
  - BLOOD TRIGLYCERIDES INCREASED [None]
  - CHEST PAIN [None]
  - CONVULSION [None]
  - DEPRESSION [None]
  - DIZZINESS [None]
  - DRUG TOXICITY [None]
  - FATIGUE [None]
  - HEADACHE [None]
  - MIGRAINE [None]
  - NARCOLEPSY [None]
  - PARAESTHESIA [None]
  - PARAESTHESIA ORAL [None]
  - PHOTOSENSITIVITY REACTION [None]
  - SEXUAL DYSFUNCTION [None]
  - SLEEP DISORDER [None]
  - VISUAL DISTURBANCE [None]
